FAERS Safety Report 4377852-7 (Version None)
Quarter: 2004Q2

REPORT INFORMATION
  Report Type: 
  Country: None (occurrence: None)
  Receive Date: 20040608
  Receipt Date: 20040601
  Transmission Date: 20050107
  Serious: Yes (Life-Threatening, Hospitalization)
  Sender: FDA-Public Use
  Company Number: DE-JNJFOC-20040600365

PATIENT
  Age: 68 Year
  Sex: Female

DRUGS (7)
  1. DOXORUBICIN HCL [Suspect]
     Indication: OVARIAN CANCER
     Dosage: 40 MG/M2, INTRAVENOUS
     Route: 042
     Dates: start: 20040310, end: 20040505
  2. CARBOPLATIN [Suspect]
     Indication: OVARIAN CANCER
     Dosage: AUC 6 X3 CYCLES
     Dates: start: 20040310, end: 20040505
  3. DEXAMETHASONE [Suspect]
     Indication: NAUSEA
     Dosage: SEE IMAGE
     Dates: start: 20040308, end: 20040309
  4. DEXAMETHASONE [Suspect]
     Indication: NAUSEA
     Dosage: SEE IMAGE
     Dates: start: 20040311, end: 20040312
  5. DEXAMETHASONE [Suspect]
     Indication: NAUSEA
     Dosage: SEE IMAGE
     Dates: start: 20040413, end: 20040420
  6. DEXAMETHASONE [Suspect]
     Indication: NAUSEA
     Dosage: SEE IMAGE
     Dates: start: 20040506, end: 20040510
  7. GRANISETRON (GRANISETRON) [Concomitant]

REACTIONS (2)
  - GASTRIC PERFORATION [None]
  - NAUSEA [None]
